FAERS Safety Report 8569622-0 (Version None)
Quarter: 2012Q3

REPORT INFORMATION
  Report Type: 
  Country: None (occurrence: None)
  Receive Date: 20120803
  Receipt Date: 20120619
  Transmission Date: 20120928
  Serious: No
  Sender: FDA-Public Use
  Company Number: US-ABBOTT-12P-163-0947785-00

PATIENT
  Sex: Female
  Weight: 90.8 kg

DRUGS (7)
  1. NIASPAN [Suspect]
     Indication: LOW DENSITY LIPOPROTEIN INCREASED
     Dosage: AT 7:00 TO 7:30 AM
     Dates: start: 20100601
  2. WOMEN'S MULTI [Concomitant]
     Indication: PRODUCT USED FOR UNKNOWN INDICATION
  3. VITAMIN E [Concomitant]
     Indication: PRODUCT USED FOR UNKNOWN INDICATION
  4. MELOXICAM [Concomitant]
     Indication: PRODUCT USED FOR UNKNOWN INDICATION
  5. GINGKO BILOBA EXTR [Concomitant]
     Indication: PRODUCT USED FOR UNKNOWN INDICATION
  6. PROTEINS NOS W/VITAMINS NOS [Concomitant]
     Indication: NAIL DISORDER
  7. LISINOPRIL [Concomitant]
     Indication: PRODUCT USED FOR UNKNOWN INDICATION

REACTIONS (2)
  - DIVERTICULITIS [None]
  - INTERVERTEBRAL DISC PROTRUSION [None]
